FAERS Safety Report 5502208-0 (Version None)
Quarter: 2007Q4

REPORT INFORMATION
  Report Type: 
  Country: None (occurrence: None)
  Receive Date: 20071030
  Receipt Date: 20071026
  Transmission Date: 20080405
  Serious: Yes (Other)
  Sender: FDA-Public Use
  Company Number: BR-ASTRAZENECA-2007UW20499

PATIENT
  Age: 990 Month
  Sex: Female
  Weight: 48 kg

DRUGS (16)
  1. SEROQUEL [Suspect]
     Indication: DEMENTIA ALZHEIMER'S TYPE
     Route: 048
     Dates: start: 20061001, end: 20070601
  2. SEROQUEL [Suspect]
     Indication: DEMENTIA
     Route: 048
     Dates: start: 20061001, end: 20070601
  3. SEROQUEL [Suspect]
     Route: 048
     Dates: start: 20070601, end: 20070819
  4. SEROQUEL [Suspect]
     Route: 048
     Dates: start: 20070601, end: 20070819
  5. SEROQUEL [Suspect]
     Route: 048
     Dates: start: 20070820, end: 20070824
  6. SEROQUEL [Suspect]
     Route: 048
     Dates: start: 20070820, end: 20070824
  7. SEROQUEL [Suspect]
     Route: 048
     Dates: start: 20070824
  8. SEROQUEL [Suspect]
     Route: 048
     Dates: start: 20070824
  9. NEULEPTIL [Concomitant]
  10. INSULINA [Concomitant]
     Route: 058
     Dates: start: 20030101
  11. GLUCOBAY [Concomitant]
  12. ADALAT [Concomitant]
  13. ASPIRIN [Concomitant]
  14. FENERGAN [Concomitant]
  15. TAMOXIFEN CITRATE [Concomitant]
     Indication: BREAST CANCER
     Route: 048
  16. RISPERIDONE [Concomitant]
     Indication: DEMENTIA ALZHEIMER'S TYPE
     Route: 048

REACTIONS (4)
  - AGGRESSION [None]
  - DRUG INEFFECTIVE [None]
  - OEDEMA PERIPHERAL [None]
  - SQUAMOUS CELL CARCINOMA [None]
